FAERS Safety Report 4485130-0 (Version None)
Quarter: 2004Q4

REPORT INFORMATION
  Report Type: 
  Country: None (occurrence: None)
  Receive Date: 20041026
  Receipt Date: 20031106
  Transmission Date: 20050328
  Serious: No
  Sender: FDA-Public Use
  Company Number: US-BRISTOL-MYERS SQUIBB COMPANY-12429650

PATIENT
  Age: 68 Year
  Sex: Female
  Weight: 91 kg

DRUGS (4)
  1. GLUCOPHAGE XR [Suspect]
     Indication: DIABETES MELLITUS
     Route: 048
     Dates: start: 20031022, end: 20031104
  2. NORVASC [Concomitant]
  3. AVANDIA [Concomitant]
  4. PRANDIN [Concomitant]

REACTIONS (5)
  - COUGH [None]
  - HOARSENESS [None]
  - INSOMNIA [None]
  - PHARYNGOLARYNGEAL PAIN [None]
  - POSTNASAL DRIP [None]
